FAERS Safety Report 4655141-0 (Version None)
Quarter: 2005Q2

REPORT INFORMATION
  Report Type: 
  Country: None (occurrence: None)
  Receive Date: 20050401
  Receipt Date: 20050207
  Transmission Date: 20051028
  Serious: No
  Sender: FDA-Public Use
  Company Number: SU-2005-003095

PATIENT
  Age: 56 Year
  Sex: Male
  Weight: 90.7194 kg

DRUGS (4)
  1. BENICAR HCT [Suspect]
     Indication: HYPERTENSION
     Dosage: 40.125 MG QD PO
     Route: 048
     Dates: start: 20050206
  2. PROTONIX [Concomitant]
  3. POTASSIUM CHLORIDE [Concomitant]
  4. ASPIRIN [Concomitant]

REACTIONS (1)
  - ABDOMINAL PAIN UPPER [None]
